FAERS Safety Report 25284940 (Version 2)
Quarter: 2025Q2

REPORT INFORMATION
  Report Type: Report from Study
  Country: US (occurrence: US)
  Receive Date: 20250508
  Receipt Date: 20250526
  Transmission Date: 20250716
  Serious: Yes (Hospitalization, Other)
  Sender: ABBVIE
  Company Number: US-ABBVIE-6270317

PATIENT
  Age: 70 Year
  Sex: Male

DRUGS (1)
  1. SKYRIZI [Suspect]
     Active Substance: RISANKIZUMAB-RZAA
     Indication: Psoriasis
     Route: 058
     Dates: start: 20250425

REACTIONS (5)
  - Rib fracture [Unknown]
  - Lung perforation [Not Recovered/Not Resolved]
  - Fall [Unknown]
  - Pleural effusion [Unknown]
  - Accident [Unknown]

NARRATIVE: CASE EVENT DATE: 20250101
